FAERS Safety Report 14727278 (Version 8)
Quarter: 2019Q3

REPORT INFORMATION
  Report Type: Report from Study
  Country: JP (occurrence: JP)
  Receive Date: 20180406
  Receipt Date: 20190710
  Transmission Date: 20191004
  Serious: Yes (Hospitalization, Other)
  Sender: FDA-Public Use
  Company Number: JP-GLAXOSMITHKLINE-JP2018JPN056741

PATIENT
  Age: 45 Year
  Sex: Male
  Weight: 95 kg

DRUGS (45)
  1. BELIMUMAB [Suspect]
     Active Substance: BELIMUMAB
     Indication: SYSTEMIC LUPUS ERYTHEMATOSUS
     Dosage: 10 MG/KG, EVERY TWO WEEKS
     Route: 041
     Dates: start: 20180223, end: 20180323
  2. BELIMUMAB [Suspect]
     Active Substance: BELIMUMAB
     Dosage: 10 MG/KG, EVERY FOUR WEEKS
     Route: 041
     Dates: start: 20180420
  3. PREDNISOLONE. [Suspect]
     Active Substance: PREDNISOLONE
     Dosage: 70 MG, 1D
     Route: 048
     Dates: start: 20180222, end: 20180228
  4. PREDNISOLONE. [Suspect]
     Active Substance: PREDNISOLONE
     Dosage: 40 MG, 1D
     Route: 048
     Dates: start: 20180315, end: 20180328
  5. PREDNISOLONE. [Suspect]
     Active Substance: PREDNISOLONE
     Dosage: 30 MG, 1D
     Route: 048
     Dates: start: 20180531, end: 20180712
  6. OMEPRAZOLE. [Suspect]
     Active Substance: OMEPRAZOLE
     Indication: PANCREATITIS ACUTE
     Dosage: 40 MG, 1D
     Route: 041
     Dates: start: 20180330, end: 20180412
  7. AZELNIDIPINE [Concomitant]
     Active Substance: AZELNIDIPINE
     Dosage: UNK
  8. HUMALOG [Concomitant]
     Active Substance: INSULIN LISPRO
     Dosage: UNK
  9. FUROSEMIDE. [Suspect]
     Active Substance: FUROSEMIDE
     Indication: SYSTEMIC LUPUS ERYTHEMATOSUS
     Dosage: UNK
     Route: 048
  10. PREDNISOLONE. [Suspect]
     Active Substance: PREDNISOLONE
     Dosage: 60 MG, 1D
     Route: 048
     Dates: start: 20180301, end: 20180307
  11. PREDNISOLONE. [Suspect]
     Active Substance: PREDNISOLONE
     Dosage: 40 MG, 1D
     Route: 048
     Dates: start: 20180403, end: 20180530
  12. PREDNISOLONE. [Suspect]
     Active Substance: PREDNISOLONE
     Dosage: 25 MG, 1D
     Route: 048
     Dates: start: 20180713, end: 20180809
  13. CELLCEPT [Suspect]
     Active Substance: MYCOPHENOLATE MOFETIL\MYCOPHENOLATE MOFETIL HYDROCHLORIDE
     Indication: SYSTEMIC LUPUS ERYTHEMATOSUS
     Dosage: UNK
     Route: 048
     Dates: end: 2018
  14. NOVORAPID [Concomitant]
     Active Substance: INSULIN ASPART
     Dosage: UNK
  15. PITAVASTATIN CALCIUM [Concomitant]
     Active Substance: PITAVASTATIN CALCIUM
     Dosage: UNK
  16. CARDENALIN [Concomitant]
     Active Substance: DOXAZOSIN MESYLATE
     Dosage: UNK
  17. PREDNISOLONE. [Suspect]
     Active Substance: PREDNISOLONE
     Dosage: 50 MG, 1D
     Route: 048
     Dates: start: 20180308, end: 20180314
  18. PREDNISOLONE. [Suspect]
     Active Substance: PREDNISOLONE
     Dosage: 40 MG, 1D
     Route: 041
     Dates: start: 20180329, end: 20180329
  19. SODIUM PICOSULFATE HYDRATE [Concomitant]
     Active Substance: SODIUM PICOSULFATE
     Dosage: UNK
  20. CARVEDILOL. [Concomitant]
     Active Substance: CARVEDILOL
     Dosage: UNK
  21. FEBURIC [Concomitant]
     Active Substance: FEBUXOSTAT
     Dosage: UNK
  22. MEROPENEM. [Suspect]
     Active Substance: MEROPENEM
     Indication: PNEUMOCYSTIS JIROVECII PNEUMONIA
     Dosage: UNK
     Route: 041
  23. TENELIA [Concomitant]
     Active Substance: TENELIGLIPTIN
     Dosage: UNK
  24. AMLODIPINE BESILATE [Concomitant]
     Active Substance: AMLODIPINE BESYLATE
     Dosage: UNK
  25. BAYASPIRIN [Concomitant]
     Active Substance: ASPIRIN
     Dosage: UNK
  26. BONVIVA [Concomitant]
     Active Substance: IBANDRONATE SODIUM
     Indication: OSTEOPOROSIS PROPHYLAXIS
     Dosage: UNK
  27. NOVOLIN R [Concomitant]
     Active Substance: INSULIN HUMAN
     Dosage: UNK
  28. MEROPENEM. [Suspect]
     Active Substance: MEROPENEM
     Indication: PANCREATITIS ACUTE
     Dosage: 1 G, TID
     Route: 041
     Dates: start: 20180330, end: 20180409
  29. BONALON [Concomitant]
     Active Substance: ALENDRONATE SODIUM
     Indication: OSTEOPOROSIS PROPHYLAXIS
     Dosage: UNK
  30. BAKTAR [Concomitant]
     Active Substance: SULFAMETHOXAZOLE\TRIMETHOPRIM
     Indication: ANTIFUNGAL PROPHYLAXIS
     Dosage: 1 DF, WE
  31. INSULIN GLARGINE (GENETICAL RECOMBINATION) [Concomitant]
     Active Substance: INSULIN GLARGINE
     Dosage: UNK
  32. SPIRONOLACTONE. [Concomitant]
     Active Substance: SPIRONOLACTONE
     Indication: SYSTEMIC LUPUS ERYTHEMATOSUS
     Dosage: UNK
  33. PREDNISOLONE. [Suspect]
     Active Substance: PREDNISOLONE
     Indication: SYSTEMIC LUPUS ERYTHEMATOSUS
     Dosage: UNK
     Route: 048
  34. PREDNISOLONE. [Suspect]
     Active Substance: PREDNISOLONE
     Dosage: 60 MG, 1D
     Route: 041
     Dates: start: 20180330, end: 20180402
  35. PREDNISOLONE. [Suspect]
     Active Substance: PREDNISOLONE
     Dosage: 22.5 MG, 1D
     Route: 048
     Dates: start: 20180810
  36. MIRACLID [Suspect]
     Active Substance: ULINASTATIN
     Indication: PANCREATITIS ACUTE
     Dosage: 300000 IU, 1D
     Route: 041
     Dates: start: 20180330, end: 20180412
  37. PROGRAF [Suspect]
     Active Substance: TACROLIMUS\TACROLIMUS ANHYDROUS
     Indication: SYSTEMIC LUPUS ERYTHEMATOSUS
     Dosage: UNK
     Route: 048
     Dates: end: 2018
  38. PLAQUENIL [Suspect]
     Active Substance: HYDROXYCHLOROQUINE SULFATE
     Indication: SYSTEMIC LUPUS ERYTHEMATOSUS
     Dosage: UNK
     Route: 048
     Dates: end: 20180412
  39. VALIXA [Concomitant]
     Active Substance: VALGANCICLOVIR
     Dosage: UNK
  40. BAKTAR [Concomitant]
     Active Substance: SULFAMETHOXAZOLE\TRIMETHOPRIM
     Indication: PNEUMOCYSTIS JIROVECII PNEUMONIA
  41. DAIKENCHUTO [Concomitant]
     Active Substance: HERBALS
     Dosage: UNK
  42. RABEPRAZOLE SODIUM. [Concomitant]
     Active Substance: RABEPRAZOLE SODIUM
     Dosage: UNK
  43. AZILVA [Concomitant]
     Active Substance: AZILSARTAN KAMEDOXOMIL
     Dosage: UNK
  44. SENNOSIDE [Concomitant]
     Active Substance: SENNOSIDES
     Dosage: UNK
  45. PERSANTINE [Concomitant]
     Active Substance: DIPYRIDAMOLE
     Indication: SYSTEMIC LUPUS ERYTHEMATOSUS
     Dosage: UNK

REACTIONS (3)
  - Pancreatitis acute [Recovering/Resolving]
  - Pneumocystis jirovecii pneumonia [Recovered/Resolved]
  - White blood cell count decreased [Recovering/Resolving]

NARRATIVE: CASE EVENT DATE: 20180329
